FAERS Safety Report 9293232 (Version 2)
Quarter: 2013Q3

REPORT INFORMATION
  Report Type: Report from Study
  Country: DE (occurrence: DE)
  Receive Date: 20130516
  Receipt Date: 20130723
  Transmission Date: 20140515
  Serious: Yes (Other)
  Sender: FDA-Public Use
  Company Number: DE-ELI_LILLY_AND_COMPANY-DE201305002335

PATIENT
  Sex: Female

DRUGS (6)
  1. TERIPARATIDE [Suspect]
     Indication: OSTEOPOROSIS
     Dosage: UNK, QD
     Route: 058
     Dates: start: 20111121, end: 20130601
  2. VITAMIN D NOS [Concomitant]
  3. BLOPRESS [Concomitant]
  4. SIMVASTAN [Concomitant]
  5. NEBIVOLOL [Concomitant]
  6. TORASEMID [Concomitant]

REACTIONS (6)
  - Bone cancer [Not Recovered/Not Resolved]
  - Lung neoplasm malignant [Not Recovered/Not Resolved]
  - Nasopharyngitis [Not Recovered/Not Resolved]
  - Pneumonia [Not Recovered/Not Resolved]
  - Arthropathy [Not Recovered/Not Resolved]
  - Back disorder [Not Recovered/Not Resolved]
